FAERS Safety Report 9597214 (Version 1)
Quarter: 2013Q4

REPORT INFORMATION
  Report Type: Spontaneous
  Country: US (occurrence: US)
  Receive Date: 20131004
  Receipt Date: 20131004
  Transmission Date: 20140711
  Serious: No
  Sender: FDA-Public Use
  Company Number: US-AMGEN-USASP2013018185

PATIENT
  Age: 61 Year
  Sex: Male
  Weight: 104.31 kg

DRUGS (5)
  1. ENBREL [Suspect]
     Indication: RHEUMATOID ARTHRITIS
     Dosage: 50 MG, QWK
     Route: 058
  2. ENBREL [Suspect]
     Indication: PSORIASIS
  3. METOPROLOL [Concomitant]
     Dosage: 25 MG, UNK,ER
  4. ASPIRIN (E.C.) [Concomitant]
     Dosage: 81 MG, UNK
  5. SIMCOR                             /00848101/ [Concomitant]
     Dosage: 500-20-MG

REACTIONS (3)
  - Back pain [Recovered/Resolved]
  - Gait disturbance [Recovered/Resolved]
  - Arthritis [Recovered/Resolved]
